FAERS Safety Report 8234018-8 (Version None)
Quarter: 2012Q1

REPORT INFORMATION
  Report Type: 
  Country: None (occurrence: None)
  Receive Date: 20120326
  Receipt Date: 20120322
  Transmission Date: 20120608
  Serious: Yes (Hospitalization)
  Sender: FDA-Public Use
  Company Number: US-B.I. PHARMACEUTICALS,INC./RIDGEFIELD-2012-BP-05464BP

PATIENT
  Sex: Female

DRUGS (17)
  1. SYNTHROID [Concomitant]
     Indication: THYROID DISORDER
  2. ASPIRIN [Concomitant]
     Indication: CARDIAC DISORDER
  3. LOVAZA [Concomitant]
     Indication: SUPPLEMENTATION THERAPY
  4. METOPROLOL SUCCINATE [Concomitant]
     Indication: CARDIAC DISORDER
  5. LOSARTAN POTASSIUM [Concomitant]
     Indication: HYPERTENSION
  6. MUCINEX [Concomitant]
     Indication: CHRONIC OBSTRUCTIVE PULMONARY DISEASE
  7. SINGULAIR [Concomitant]
     Indication: CHRONIC OBSTRUCTIVE PULMONARY DISEASE
  8. SIMVASTATIN [Concomitant]
     Indication: BLOOD CHOLESTEROL INCREASED
  9. CLONAZEPAM [Concomitant]
     Indication: ANXIETY
  10. ZYRTEC [Concomitant]
     Indication: HYPERSENSITIVITY
  11. VITAMIN B-12 [Concomitant]
     Indication: SUPPLEMENTATION THERAPY
  12. SENOKOT [Concomitant]
     Indication: CONSTIPATION
  13. SPIRIVA [Suspect]
     Indication: CHRONIC OBSTRUCTIVE PULMONARY DISEASE
     Dosage: 18 MCG
     Route: 055
  14. VITAMIN D [Concomitant]
     Indication: SUPPLEMENTATION THERAPY
  15. TRAMADOL HYDROCHLORIDE AND ACETAMINOPHEN [Concomitant]
     Indication: PAIN
  16. PREDNISONE TAB [Concomitant]
     Indication: LUNG DISORDER
  17. ADVAIR DISKUS 100/50 [Concomitant]
     Indication: CHRONIC OBSTRUCTIVE PULMONARY DISEASE

REACTIONS (1)
  - LUNG OPERATION [None]
